FAERS Safety Report 16651638 (Version 3)
Quarter: 2019Q3

REPORT INFORMATION
  Report Type: Report from Study
  Country: FR (occurrence: FR)
  Receive Date: 20190731
  Receipt Date: 20190911
  Transmission Date: 20191004
  Serious: Yes (Hospitalization)
  Sender: FDA-Public Use
  Company Number: FR-SAMSUNG BIOEPIS-SB-2019-21282

PATIENT
  Age: 49 Year
  Sex: Male
  Weight: 68 kg

DRUGS (15)
  1. ENTOCORT [Concomitant]
     Active Substance: BUDESONIDE
     Indication: PRODUCT USED FOR UNKNOWN INDICATION
     Dosage: UNKNOWN
     Route: 065
  2. IMUREL [Concomitant]
     Active Substance: AZATHIOPRINE SODIUM
     Route: 065
     Dates: start: 2005, end: 200803
  3. UVEDOSE [Concomitant]
     Active Substance: CHOLECALCIFEROL
     Dosage: UNKNOWN
     Route: 065
  4. AZATHIOPRINE. [Concomitant]
     Active Substance: AZATHIOPRINE
     Indication: INFLAMMATORY BOWEL DISEASE
     Route: 065
     Dates: start: 201203
  5. SPECIAFOLDINE [Concomitant]
     Active Substance: FOLIC ACID
     Dosage: UNKNOWN
     Route: 065
  6. CIFLOX [Concomitant]
     Active Substance: CIPROFLOXACIN
     Indication: PRODUCT USED FOR UNKNOWN INDICATION
     Dosage: UNKNOWN
     Route: 065
  7. IMUREL [Concomitant]
     Active Substance: AZATHIOPRINE SODIUM
     Dosage: UNKNOWN
     Route: 065
     Dates: start: 201203
  8. FLIXABI [Suspect]
     Active Substance: INFLIXIMAB
     Indication: CROHN^S DISEASE
     Route: 042
     Dates: start: 20180417
  9. INFLIXIMAB [Concomitant]
     Active Substance: INFLIXIMAB
     Indication: CROHN^S DISEASE
     Dosage: UNKNOWN
     Route: 065
     Dates: start: 20120405
  10. UVEDOSE [Concomitant]
     Active Substance: CHOLECALCIFEROL
     Indication: PRODUCT USED FOR UNKNOWN INDICATION
     Dosage: UNKNOWN
     Route: 065
  11. INFLIXIMAB [Concomitant]
     Active Substance: INFLIXIMAB
     Route: 065
     Dates: start: 201501
  12. SPECIAFOLDINE [Concomitant]
     Active Substance: FOLIC ACID
     Indication: PRODUCT USED FOR UNKNOWN INDICATION
     Route: 065
  13. IMUREL [Concomitant]
     Active Substance: AZATHIOPRINE SODIUM
     Indication: PRODUCT USED FOR UNKNOWN INDICATION
     Dosage: 2 TABLETS
     Route: 065
     Dates: start: 199907
  14. IMUREL [Concomitant]
     Active Substance: AZATHIOPRINE SODIUM
     Route: 065
     Dates: start: 200010
  15. IMODIUM [Concomitant]
     Active Substance: LOPERAMIDE HYDROCHLORIDE
     Indication: PRODUCT USED FOR UNKNOWN INDICATION
     Dosage: UNKNOWN
     Route: 065

REACTIONS (12)
  - General physical health deterioration [Recovering/Resolving]
  - Asthenia [Recovering/Resolving]
  - Exposure to communicable disease [Recovering/Resolving]
  - Hidradenitis [Unknown]
  - Cytomegalovirus infection [Recovering/Resolving]
  - Nausea [Recovering/Resolving]
  - Weight decreased [Recovering/Resolving]
  - Surgery [Unknown]
  - Lymphangitis [Recovering/Resolving]
  - Malaise [Recovering/Resolving]
  - Acute kidney injury [Recovering/Resolving]
  - Dehydration [Recovering/Resolving]

NARRATIVE: CASE EVENT DATE: 20190307
